FAERS Safety Report 8421945-1 (Version None)
Quarter: 2012Q2

REPORT INFORMATION
  Report Type: 
  Country: None (occurrence: None)
  Receive Date: 20120608
  Receipt Date: 20120529
  Transmission Date: 20120825
  Serious: Yes (Other)
  Sender: FDA-Public Use
  Company Number: CA-PFIZER INC-2012130189

PATIENT
  Age: 9 Year
  Sex: Male
  Weight: 23 kg

DRUGS (9)
  1. FENTANYL [Suspect]
     Indication: PAIN
     Dosage: 75 UG/HOUR
  2. NABILONE [Concomitant]
     Indication: NAUSEA
     Dosage: UNK
  3. HYDROMORPHONE HCL [Suspect]
     Indication: BREAKTHROUGH PAIN
     Dosage: 3 MG AS NEEDED EVERY HOUR
     Route: 058
  4. LORAZEPAM [Concomitant]
     Indication: NAUSEA
     Dosage: UNK
  5. ONDANSETRON [Concomitant]
     Indication: NAUSEA
     Dosage: UNK
  6. PEG-3350 [Concomitant]
     Dosage: UNK
  7. DOCUSATE [Concomitant]
     Dosage: UNK
  8. GABAPENTIN [Suspect]
     Indication: PAIN
     Dosage: UNK
  9. NAPROXEN [Suspect]
     Indication: PAIN

REACTIONS (2)
  - BONE PAIN [None]
  - DRUG INEFFECTIVE FOR UNAPPROVED INDICATION [None]
